FAERS Safety Report 8811978 (Version 1)
Quarter: 2012Q4

REPORT INFORMATION
  Report Type: 
  Country: DK (occurrence: GB)
  Receive Date: 20120927
  Receipt Date: 20120927
  Transmission Date: 20130627
  Serious: Yes (Disabling)
  Sender: FDA-Public Use
  Company Number: GB-FRI-1000038991

PATIENT
  Age: 44 Year
  Sex: Female
  Weight: 59.87 kg

DRUGS (4)
  1. CITALOPRAM [Suspect]
     Indication: ANXIETY
     Dosage: 20 mg daily
     Route: 048
     Dates: start: 20110812, end: 20111008
  2. MIRTAZAPINE [Concomitant]
  3. PROPRANOLOL [Concomitant]
  4. SERTRALINE HYDROCHLORIDE [Concomitant]

REACTIONS (2)
  - Chest pain [Recovered/Resolved]
  - Chest discomfort [Recovered/Resolved]
